FAERS Safety Report 10962115 (Version 2)
Quarter: 2015Q2

REPORT INFORMATION
  Report Type: Spontaneous
  Country: US (occurrence: US)
  Receive Date: 20150327
  Receipt Date: 20150415
  Transmission Date: 20150821
  Serious: No
  Sender: FDA-Public Use
  Company Number: US-PFIZER INC-2015102571

PATIENT
  Age: 67 Year
  Sex: Female
  Weight: 57 kg

DRUGS (4)
  1. DICLOFENAC [Suspect]
     Active Substance: DICLOFENAC
     Indication: ANTIINFLAMMATORY THERAPY
     Dosage: 1 DF, 3X/DAY
     Route: 048
     Dates: start: 20150312, end: 201503
  2. DICLOFENAC [Suspect]
     Active Substance: DICLOFENAC
     Indication: BURSITIS
  3. DICLOFENAC [Suspect]
     Active Substance: DICLOFENAC
     Indication: INFLAMMATION
  4. SYNTHROID [Concomitant]
     Active Substance: LEVOTHYROXINE SODIUM

REACTIONS (3)
  - Nausea [Recovered/Resolved]
  - Abdominal pain upper [Recovered/Resolved]
  - Somnolence [Recovered/Resolved]

NARRATIVE: CASE EVENT DATE: 201503
